FAERS Safety Report 20521104 (Version 2)
Quarter: 2022Q1

REPORT INFORMATION
  Report Type: Other
  Country: CA (occurrence: CA)
  Receive Date: 20220226
  Receipt Date: 20220324
  Transmission Date: 20220424
  Serious: Yes (Other)
  Sender: FDA-Public Use
  Company Number: CA-CELLTRION INC.-2022CA002047

PATIENT

DRUGS (1)
  1. RITUXIMAB [Suspect]
     Active Substance: RITUXIMAB
     Indication: Immunoglobulin G4 related disease
     Dosage: 1000 MILLIGRAM
     Route: 042

REACTIONS (7)
  - Exophthalmos [Unknown]
  - Condition aggravated [Unknown]
  - Blood pressure abnormal [Unknown]
  - Headache [Unknown]
  - Heart rate increased [Unknown]
  - Off label use [Unknown]
  - Off label use [Unknown]
